FAERS Safety Report 7228161-X (Version None)
Quarter: 2011Q1

REPORT INFORMATION
  Report Type: 
  Country: None (occurrence: None)
  Receive Date: 20110112
  Receipt Date: 20110112
  Transmission Date: 20110831
  Serious: Yes (Other)
  Sender: FDA-Public Use
  Company Number: None

PATIENT
  Age: 56 Year
  Sex: Female
  Weight: 101.8 kg

DRUGS (1)
  1. SUMATRIPTAN SUCCINATE [Suspect]
     Indication: MIGRAINE
     Dosage: 100 MG AS NEEDED ORAL 047
     Route: 048
     Dates: start: 20101101

REACTIONS (3)
  - DRUG INEFFECTIVE [None]
  - PRODUCT SUBSTITUTION ISSUE [None]
  - IMPAIRED WORK ABILITY [None]
